FAERS Safety Report 16739662 (Version 1)
Quarter: 2019Q3

REPORT INFORMATION
  Report Type: Spontaneous
  Country: US (occurrence: US)
  Receive Date: 20190708
  Receipt Date: 20190708
  Transmission Date: 20191005
  Serious: Yes (Hospitalization)
  Sender: FDA-Public Use
  Company Number: None

PATIENT
  Age: 84 Year
  Sex: Male
  Weight: 65 kg

DRUGS (1)
  1. LISINOPRIL. [Suspect]
     Active Substance: LISINOPRIL
     Indication: HYPERTENSION
     Route: 048
     Dates: start: 20180814, end: 20190417

REACTIONS (8)
  - Spinal osteoarthritis [None]
  - Pulmonary fibrosis [None]
  - Coordination abnormal [None]
  - Tongue oedema [None]
  - Rib fracture [None]
  - Contusion [None]
  - Osteoarthritis [None]
  - Carotid arteriosclerosis [None]

NARRATIVE: CASE EVENT DATE: 20190416
